FAERS Safety Report 18096352 (Version 1)
Quarter: 2020Q3

REPORT INFORMATION
  Report Type: Spontaneous
  Country: US (occurrence: US)
  Receive Date: 20200729
  Receipt Date: 20200729
  Transmission Date: 20201103
  Serious: Yes (Death, Life-Threatening, Hospitalization)
  Sender: FDA-Public Use
  Company Number: None

PATIENT
  Age: 27 Year
  Sex: Male
  Weight: 80 kg

DRUGS (1)
  1. NALTREXONE IMPLANT [Suspect]
     Active Substance: NALTREXONE
     Indication: DRUG DETOXIFICATION
     Route: 023

REACTIONS (1)
  - Completed suicide [None]

NARRATIVE: CASE EVENT DATE: 20200709
